FAERS Safety Report 7085729-1 (Version None)
Quarter: 2010Q4

REPORT INFORMATION
  Report Type: 
  Country: None (occurrence: None)
  Receive Date: 20101105
  Receipt Date: 20101021
  Transmission Date: 20110411
  Serious: Yes (Hospitalization)
  Sender: FDA-Public Use
  Company Number: US-JNJFOC-20101006917

PATIENT
  Sex: Female

DRUGS (5)
  1. TYLENOL 8 HOUR MUSCLES + PAIN [Suspect]
  2. TYLENOL 8 HOUR MUSCLES + PAIN [Suspect]
     Indication: PRODUCT USED FOR UNKNOWN INDICATION
  3. EXTRA STRENGTH TYLENOL [Suspect]
  4. EXTRA STRENGTH TYLENOL [Suspect]
     Indication: PRODUCT USED FOR UNKNOWN INDICATION
  5. EXTRA STRENGTH TYLENOL PM RAPID RELEASE [Suspect]
     Indication: PRODUCT USED FOR UNKNOWN INDICATION
     Route: 048

REACTIONS (3)
  - DIARRHOEA [None]
  - GASTRIC DISORDER [None]
  - PRODUCT ODOUR ABNORMAL [None]
